FAERS Safety Report 9983225 (Version 1)
Quarter: 2014Q1

REPORT INFORMATION
  Report Type: Report from Study
  Country: US (occurrence: US)
  Receive Date: 20140307
  Receipt Date: 20140307
  Transmission Date: 20141002
  Serious: No
  Sender: FDA-Public Use
  Company Number: US-ABBVIE-13P-163-1178313-00

PATIENT
  Age: 53 Year
  Sex: Female
  Weight: 88.53 kg

DRUGS (3)
  1. HUMIRA [Suspect]
     Indication: PSORIASIS
     Route: 058
     Dates: start: 20130916, end: 20130916
  2. HUMIRA [Suspect]
     Dosage: DAY 8
     Route: 058
     Dates: start: 20130923, end: 20130923
  3. HUMIRA [Suspect]
     Dosage: DAY 22
     Route: 058
     Dates: start: 20131007

REACTIONS (7)
  - Lymphadenopathy [Unknown]
  - Lymph node pain [Unknown]
  - Dry skin [Unknown]
  - Pruritus [Unknown]
  - Dry mouth [Unknown]
  - Rash papular [Unknown]
  - Rash generalised [Unknown]
